FAERS Safety Report 7710174-2 (Version None)
Quarter: 2011Q3

REPORT INFORMATION
  Report Type: 
  Country: None (occurrence: None)
  Receive Date: 20110810
  Receipt Date: 20110804
  Transmission Date: 20111222
  Serious: Yes (Life-Threatening, Hospitalization, Other)
  Sender: FDA-Public Use
  Company Number: 2011029448

PATIENT
  Age: 35 Year
  Sex: Female

DRUGS (1)
  1. BERINERT [Suspect]
     Indication: HEREDITARY ANGIOEDEMA
     Dosage: NI, INFUSION RATE 5 MIN; 500 TO 1500 UNITS TWO
     Route: 042
     Dates: start: 20110622, end: 20110712

REACTIONS (5)
  - LOCAL SWELLING [None]
  - MEDICAL DEVICE COMPLICATION [None]
  - SKIN DISCOLOURATION [None]
  - THROMBOPHLEBITIS SUPERFICIAL [None]
  - VENA CAVA THROMBOSIS [None]
